FAERS Safety Report 9540722 (Version 1)
Quarter: 2013Q3

REPORT INFORMATION
  Report Type: Spontaneous
  Country: US (occurrence: US)
  Receive Date: 20130920
  Receipt Date: 20130920
  Transmission Date: 20140515
  Serious: Yes (Hospitalization, Other)
  Sender: FDA-Public Use
  Company Number: US-PFIZER INC-2013270734

PATIENT
  Age: 29 Year
  Sex: Male
  Weight: 58.96 kg

DRUGS (4)
  1. LYRICA [Suspect]
     Indication: FIBROMYALGIA
     Dosage: 150 MG, 3X/DAY
     Dates: start: 201303, end: 20130913
  2. LYRICA [Suspect]
     Indication: PAIN IN EXTREMITY
  3. LYRICA [Suspect]
     Indication: PAIN IN EXTREMITY
  4. MORPHINE [Concomitant]
     Dosage: UNK

REACTIONS (5)
  - Renal failure [Unknown]
  - Renal disorder [Unknown]
  - Musculoskeletal disorder [Unknown]
  - Radial nerve palsy [Unknown]
  - Pain [Not Recovered/Not Resolved]
